FAERS Safety Report 5159183-0 (Version None)
Quarter: 2006Q4

REPORT INFORMATION
  Report Type: 
  Country: None (occurrence: None)
  Receive Date: 20061128
  Receipt Date: 20061120
  Transmission Date: 20070319
  Serious: Yes (Death)
  Sender: FDA-Public Use
  Company Number: US-AMGEN-US200860

PATIENT
  Sex: Female

DRUGS (5)
  1. ARANESP [Suspect]
     Indication: ANAEMIA OF MALIGNANT DISEASE
     Dates: start: 20061027, end: 20061027
  2. GEMZAR [Concomitant]
     Dates: start: 20060922, end: 20061027
  3. TOPROL-XL [Concomitant]
     Dates: start: 20060917
  4. MS CONTIN [Concomitant]
  5. SPIRONOLACTONE [Concomitant]

REACTIONS (1)
  - DEATH [None]
